FAERS Safety Report 7203571-5 (Version None)
Quarter: 2010Q4

REPORT INFORMATION
  Report Type: 
  Country: None (occurrence: None)
  Receive Date: 20101230
  Receipt Date: 20101214
  Transmission Date: 20110411
  Serious: Yes (Hospitalization)
  Sender: FDA-Public Use
  Company Number: NO-CELGENEUS-122-21880-10100026

PATIENT
  Sex: Male
  Weight: 65 kg

DRUGS (9)
  1. REVLIMID [Suspect]
     Indication: MULTIPLE MYELOMA
     Route: 048
     Dates: start: 20100917, end: 20100927
  2. REVLIMID [Suspect]
     Route: 048
     Dates: start: 20101117
  3. DEXAMETHASONE [Suspect]
     Indication: MULTIPLE MYELOMA
     Route: 048
     Dates: start: 20100917, end: 20100927
  4. DEXAMETHASONE [Suspect]
     Route: 065
     Dates: start: 20101117
  5. OXYCONTIN [Suspect]
     Indication: PAIN
     Route: 048
     Dates: start: 20100801, end: 20100901
  6. OXYCONTIN [Suspect]
     Dosage: 10-20 MG
     Route: 048
     Dates: start: 20100901
  7. LACTULOSE [Concomitant]
     Indication: CONSTIPATION PROPHYLAXIS
     Route: 048
  8. TIMOSAN [Concomitant]
     Indication: GLAUCOMA
     Route: 047
  9. ACETAMINOPHEN [Concomitant]
     Indication: PAIN
     Route: 048

REACTIONS (4)
  - CONSTIPATION [None]
  - DEHYDRATION [None]
  - DISORIENTATION [None]
  - GENERAL PHYSICAL HEALTH DETERIORATION [None]
